FAERS Safety Report 8133235-5 (Version None)
Quarter: 2012Q1

REPORT INFORMATION
  Report Type: 
  Country: None (occurrence: None)
  Receive Date: 20120207
  Receipt Date: 20111212
  Transmission Date: 20120608
  Serious: Yes (Other)
  Sender: FDA-Public Use
  Company Number: THQ2011A08268

PATIENT
  Age: 60 Year
  Sex: Male

DRUGS (1)
  1. ACTOS [Suspect]
     Indication: PRODUCT USED FOR UNKNOWN INDICATION
     Dosage: PER ORAL (AROUND 1 YEAR AGO - NON INFORMED)
     Route: 048

REACTIONS (1)
  - BLADDER CANCER [None]
